FAERS Safety Report 13183430 (Version 1)
Quarter: 2017Q1

REPORT INFORMATION
  Report Type: Spontaneous
  Country: US (occurrence: US)
  Receive Date: 20170203
  Receipt Date: 20170203
  Transmission Date: 20170428
  Serious: No
  Sender: FDA-Public Use
  Company Number: US-009507513-1701USA008470

PATIENT
  Age: 33 Year
  Sex: Female
  Weight: 69.84 kg

DRUGS (1)
  1. NEXPLANON [Suspect]
     Active Substance: ETONOGESTREL
     Dosage: ONE ROD/THREE YEARS
     Route: 059
     Dates: start: 20170106, end: 2017

REACTIONS (3)
  - No adverse event [Unknown]
  - Product quality issue [Unknown]
  - Device expulsion [Recovered/Resolved]

NARRATIVE: CASE EVENT DATE: 2017
